FAERS Safety Report 4664957-6 (Version None)
Quarter: 2005Q2

REPORT INFORMATION
  Report Type: 
  Country: None (occurrence: None)
  Receive Date: 20050518
  Receipt Date: 20050221
  Transmission Date: 20051028
  Serious: Yes (Hospitalization)
  Sender: FDA-Public Use
  Company Number: 2005UW03004

PATIENT
  Age: 50 Year
  Sex: Male
  Weight: 93.6 kg

DRUGS (7)
  1. CRESTOR [Suspect]
     Indication: DYSLIPIDAEMIA
     Route: 048
     Dates: end: 20050422
  2. ACIPHEX [Concomitant]
     Indication: GASTROINTESTINAL DISORDER
     Route: 048
  3. CELEBREX [Concomitant]
     Indication: RHEUMATOID ARTHRITIS
     Route: 048
     Dates: end: 20050422
  4. NEURONTIN [Concomitant]
     Indication: PAIN
     Route: 048
  5. NEURONTIN [Concomitant]
     Indication: PARAESTHESIA
     Route: 048
  6. HUMALOG [Concomitant]
     Indication: DIABETES MELLITUS INSULIN-DEPENDENT
     Route: 058
  7. LIDODERM [Concomitant]
     Route: 062

REACTIONS (2)
  - RHEUMATOID NODULE [None]
  - STAPHYLOCOCCAL INFECTION [None]
